FAERS Safety Report 13053419 (Version 1)
Quarter: 2016Q4

REPORT INFORMATION
  Report Type: Report from Study
  Country: None (occurrence: PT)
  Receive Date: 20161222
  Receipt Date: 20161222
  Transmission Date: 20170207
  Serious: Yes (Hospitalization)
  Sender: FDA-Public Use
  Company Number: PT-ABBVIE-16K-130-1685978-00

PATIENT
  Age: 32 Year
  Sex: Female

DRUGS (8)
  1. MATERVITA [Concomitant]
     Indication: SUPPLEMENTATION THERAPY
     Route: 048
     Dates: start: 201604
  2. HUMIRA [Suspect]
     Active Substance: ADALIMUMAB
     Dosage: LOADING DOSE TWO (WEEK 2)
     Route: 058
     Dates: start: 20160607, end: 20160607
  3. HUMIRA [Suspect]
     Active Substance: ADALIMUMAB
     Route: 058
     Dates: start: 20160621, end: 2016
  4. HUMIRA [Suspect]
     Active Substance: ADALIMUMAB
     Indication: CROHN^S DISEASE
     Route: 058
     Dates: start: 2016, end: 20160720
  5. BEN-U-RON [Concomitant]
     Indication: MIGRAINE
     Route: 048
  6. HUMIRA [Suspect]
     Active Substance: ADALIMUMAB
     Indication: CROHN^S DISEASE
     Dosage: LOADING DOSE ONE (WEEK 0)
     Route: 058
     Dates: start: 20160524, end: 20160524
  7. NOLOTIL [Concomitant]
     Active Substance: METAMIZOLE
     Indication: PRODUCT USED FOR UNKNOWN INDICATION
     Dates: start: 2016, end: 2016
  8. SALOFALK GRANULOS [Concomitant]
     Indication: CROHN^S DISEASE
     Route: 048
     Dates: start: 2015

REACTIONS (9)
  - Exposure during pregnancy [Unknown]
  - Gestational diabetes [Recovering/Resolving]
  - Paraesthesia [Recovered/Resolved]
  - Blood magnesium decreased [Unknown]
  - Burning sensation [Recovered/Resolved]
  - Labour complication [Recovered/Resolved]
  - Hypoaesthesia [Recovering/Resolving]
  - Anaemia of pregnancy [Recovered/Resolved]
  - Normal newborn [Unknown]

NARRATIVE: CASE EVENT DATE: 2016
